FAERS Safety Report 7402456-9 (Version None)
Quarter: 2011Q2

REPORT INFORMATION
  Report Type: 
  Country: None (occurrence: None)
  Receive Date: 20110408
  Receipt Date: 20110324
  Transmission Date: 20111010
  Serious: Yes (Other)
  Sender: FDA-Public Use
  Company Number: PHHY2010SI88108

PATIENT
  Age: 58 Year
  Sex: Male

DRUGS (11)
  1. LANTUS [Concomitant]
     Indication: DIABETES MELLITUS
     Dosage: UNK
  2. TRITACE [Concomitant]
     Dosage: 5 MG, BID
     Route: 048
     Dates: start: 20020101
  3. TERTENSIF - SLOW RELEASE [Concomitant]
     Dosage: UNK
     Route: 048
     Dates: start: 20020101
  4. LASIX [Concomitant]
     Dosage: HALF TABLET TWICE PER WEEK
  5. CORYOL [Concomitant]
     Dosage: 2.5 MEQ/KG, BID
     Route: 048
     Dates: start: 20020101
  6. LACIPIL [Concomitant]
     Dosage: 4 MG, BID
     Route: 048
     Dates: start: 20020101
  7. FENOFIBRATE [Concomitant]
     Indication: HYPERLIPIDAEMIA
     Dosage: UNK
     Route: 048
     Dates: start: 20020101
  8. APIDRA [Concomitant]
     Indication: DIABETES MELLITUS
  9. ALISKIREN [Suspect]
     Indication: HYPERTENSION
     Dosage: 150 MG ONCE DAILY
     Dates: start: 20100311
  10. ALISKIREN [Suspect]
     Dosage: 300 MG
  11. VALSACOR [Concomitant]
     Dosage: 160 MG
     Route: 048
     Dates: start: 20020101

REACTIONS (1)
  - URINE ALBUMIN/CREATININE RATIO INCREASED [None]
